FAERS Safety Report 4516519-9 (Version None)
Quarter: 2004Q4

REPORT INFORMATION
  Report Type: 
  Country: None (occurrence: None)
  Receive Date: 20041029
  Receipt Date: 20040707
  Transmission Date: 20050328
  Serious: No
  Sender: FDA-Public Use
  Company Number: 2004-118238-NL

PATIENT
  Age: 18 Year
  Sex: Female
  Weight: 65.9 kg

DRUGS (2)
  1. NUVARING [Suspect]
     Indication: CONTRACEPTION
     Dosage: DF DAILY VAGINAL
     Route: 067
     Dates: start: 20040301
  2. VAGINAL SUPPOSITORIES (WAL-MART'S EQUATE BREAD) [Concomitant]

REACTIONS (5)
  - DEVICE FAILURE [None]
  - MEDICAL DEVICE DISCOMFORT [None]
  - VAGINAL BURNING SENSATION [None]
  - VAGINAL CONTRACEPTIVE DEVICE EXPELLED [None]
  - VAGINAL MYCOSIS [None]
